FAERS Safety Report 9216045 (Version 1)
Quarter: 2013Q2

REPORT INFORMATION
  Report Type: Spontaneous
  Country: CH (occurrence: CH)
  Receive Date: 20130408
  Receipt Date: 20130408
  Transmission Date: 20140414
  Serious: Yes (Death)
  Sender: FDA-Public Use
  Company Number: CH-BAYER-2013-039389

PATIENT
  Age: 45 Year
  Sex: Female
  Weight: 100 kg

DRUGS (2)
  1. YASMIN [Suspect]
     Dosage: 1 DF, UNK
  2. METHOTREXAT [Suspect]
     Indication: RHEUMATOID ARTHRITIS

REACTIONS (1)
  - Pulmonary embolism [Fatal]
